FAERS Safety Report 11259641 (Version 1)
Quarter: 2015Q3

REPORT INFORMATION
  Report Type: Spontaneous
  Country: US (occurrence: US)
  Receive Date: 20150710
  Receipt Date: 20150710
  Transmission Date: 20151125
  Serious: No
  Sender: FDA-Public Use
  Company Number: US-MALLINCKRODT-T201501030

PATIENT
  Sex: Male
  Weight: 132 kg

DRUGS (20)
  1. ASPIRIN. [Concomitant]
     Active Substance: ASPIRIN
     Dosage: 81 ML, QD AM
  2. GEMFIBROZIL. [Concomitant]
     Active Substance: GEMFIBROZIL
     Dosage: 600 MG, 1 AM 1 PM
  3. OMEPRAZOLE SANDOZ [Concomitant]
     Active Substance: OMEPRAZOLE
     Dosage: 20 MG, QD AM
  4. KRISTALOSE [Concomitant]
     Active Substance: LACTULOSE
     Dosage: 20 G, 1 PK THEN 1/2 PK ALTERNATE
  5. GENTAMICIN. [Concomitant]
     Active Substance: GENTAMICIN
     Dosage: 0.01% 30 CC EACH CATH CHANGE
  6. JANUMET [Concomitant]
     Active Substance: METFORMIN HYDROCHLORIDE\SITAGLIPTIN PHOSPHATE
     Dosage: 50- 1000 MG 1 -2X DAY
  7. TOLTERODINE TARTRATE. [Concomitant]
     Active Substance: TOLTERODINE TARTRATE
     Dosage: 4 MG, QD PM
  8. FISH OIL [Concomitant]
     Active Substance: FISH OIL
     Dosage: 1000 MG, QD AM
  9. DOCUSATE [Concomitant]
     Active Substance: DOCUSATE
     Dosage: 250 MG, BID
  10. MORPHINE [Suspect]
     Active Substance: MORPHINE
     Indication: PAIN
     Dosage: 60 MG, TID
     Route: 048
     Dates: start: 20150101
  11. MORPHINE SULFATE. [Concomitant]
     Active Substance: MORPHINE SULFATE
     Dosage: 60 MG, TID
  12. OXCARBAZEPINE. [Concomitant]
     Active Substance: OXCARBAZEPINE
     Indication: ANXIETY
     Dosage: 150 MG, 1/2 2-3 TIMES DAILY
  13. GLIMEPIRIDE. [Concomitant]
     Active Substance: GLIMEPIRIDE
     Dosage: 2 1/2 MG, AM AND PM
  14. METAMUCIL [Concomitant]
     Active Substance: PLANTAGO SEED
     Dosage: 1 TAB DAILY
  15. MORPHINE SULFATE. [Concomitant]
     Active Substance: MORPHINE SULFATE
     Dosage: 30 MG, TID
  16. GABAPENTIN. [Concomitant]
     Active Substance: GABAPENTIN
     Dosage: 3X300 MG, 3 TIMES A DAY
  17. LISINOPRIL. [Concomitant]
     Active Substance: LISINOPRIL
     Dosage: 20 MG, QD AM
  18. CYMBALTA [Concomitant]
     Active Substance: DULOXETINE HYDROCHLORIDE
     Dosage: 60 MG, QD AM
  19. SIMVASTATIN. [Concomitant]
     Active Substance: SIMVASTATIN
     Dosage: 40 MG, QD PM
  20. MULTIVIT [Concomitant]
     Active Substance: VITAMINS
     Dosage: ONE TAB AM

REACTIONS (3)
  - Dyspepsia [Not Recovered/Not Resolved]
  - Drug ineffective [Not Recovered/Not Resolved]
  - Medication residue present [Not Recovered/Not Resolved]
